FAERS Safety Report 5500146-0 (Version None)
Quarter: 2007Q4

REPORT INFORMATION
  Report Type: 
  Country: None (occurrence: None)
  Receive Date: 20071025
  Receipt Date: 20071010
  Transmission Date: 20080405
  Serious: Yes (Other)
  Sender: FDA-Public Use
  Company Number: 2007US002582

PATIENT
  Age: 36 Year
  Sex: Male

DRUGS (3)
  1. AMBISOME [Suspect]
     Indication: MENINGITIS CRYPTOCOCCAL
     Dosage: 300 MG, IV NOS
     Route: 042
     Dates: end: 20070903
  2. FLUOROCYTOSINE (FLUCYTOSINE) [Concomitant]
  3. FLUCONAZOLE [Concomitant]

REACTIONS (2)
  - CONVULSION [None]
  - LEUKOENCEPHALOPATHY [None]
